FAERS Safety Report 8240144-X (Version None)
Quarter: 2012Q1

REPORT INFORMATION
  Report Type: 
  Country: None (occurrence: None)
  Receive Date: 20120327
  Receipt Date: 20120327
  Transmission Date: 20120608
  Serious: Yes (Life-Threatening, Other)
  Sender: FDA-Public Use
  Company Number: None

PATIENT
  Sex: Male
  Weight: 54.4316 kg

DRUGS (1)
  1. CLOPIDOGREL BISULFATE [Suspect]
     Indication: THERAPEUTIC PROCEDURE
     Dosage: 75MG ONE A DAY MOUTH
     Route: 048
     Dates: start: 20101224, end: 20120128

REACTIONS (17)
  - ERUCTATION [None]
  - ABDOMINAL DISCOMFORT [None]
  - DIZZINESS [None]
  - HEART RATE INCREASED [None]
  - FATIGUE [None]
  - WEIGHT DECREASED [None]
  - DIARRHOEA [None]
  - SYNCOPE [None]
  - ABDOMINAL PAIN [None]
  - SKIN DISCOLOURATION [None]
  - ASTHENIA [None]
  - EPISTAXIS [None]
  - VOMITING [None]
  - THROMBOTIC THROMBOCYTOPENIC PURPURA [None]
  - WEIGHT GAIN POOR [None]
  - NAUSEA [None]
  - MUSCLE ATROPHY [None]
